FAERS Safety Report 9247996 (Version 3)
Quarter: 2013Q3

REPORT INFORMATION
  Report Type: Spontaneous
  Country: BR (occurrence: BR)
  Receive Date: 20130423
  Receipt Date: 20130828
  Transmission Date: 20140515
  Serious: Yes (Other)
  Sender: FDA-Public Use
  Company Number: BR-JNJFOC-20130411167

PATIENT
  Age: 55 Year
  Sex: Male
  Weight: 86 kg

DRUGS (7)
  1. REMICADE [Suspect]
     Indication: PSORIASIS
     Route: 042
     Dates: start: 20130103
  2. REMICADE [Suspect]
     Indication: PSORIASIS
     Route: 042
     Dates: start: 20130618
  3. REMICADE [Suspect]
     Indication: PSORIASIS
     Route: 042
     Dates: start: 20130219
  4. REMICADE [Suspect]
     Indication: PSORIATIC ARTHROPATHY
     Route: 042
     Dates: start: 20130219
  5. REMICADE [Suspect]
     Indication: PSORIATIC ARTHROPATHY
     Route: 042
     Dates: start: 20130618
  6. REMICADE [Suspect]
     Indication: PSORIATIC ARTHROPATHY
     Route: 042
     Dates: start: 20130103
  7. ATACAND HCT [Concomitant]
     Indication: BLOOD PRESSURE FLUCTUATION
     Route: 065

REACTIONS (6)
  - Dengue fever [Not Recovered/Not Resolved]
  - Foot fracture [Not Recovered/Not Resolved]
  - Weight decreased [Not Recovered/Not Resolved]
  - Drug ineffective [Recovering/Resolving]
  - Inflammation [Not Recovered/Not Resolved]
  - Dizziness [Recovered/Resolved]
